FAERS Safety Report 14547911 (Version 1)
Quarter: 2018Q1

REPORT INFORMATION
  Report Type: Spontaneous
  Country: US (occurrence: US)
  Receive Date: 20180219
  Receipt Date: 20180219
  Transmission Date: 20180509
  Serious: Yes (Hospitalization)
  Sender: FDA-Public Use
  Company Number: US-GLAXOSMITHKLINE-US2018026293

PATIENT
  Sex: Female

DRUGS (2)
  1. LAMOTRIGINE. [Suspect]
     Active Substance: LAMOTRIGINE
     Indication: SEIZURE
     Dosage: UNK UNK, U
     Route: 048
     Dates: start: 201610, end: 201611
  2. FOLIC ACID. [Concomitant]
     Active Substance: FOLIC ACID

REACTIONS (5)
  - Agitation [Recovered/Resolved]
  - Drug ineffective [Recovered/Resolved]
  - Aphasia [Recovered/Resolved]
  - Agraphia [Recovered/Resolved]
  - Hallucination [Recovered/Resolved]
